FAERS Safety Report 22192549 (Version 1)
Quarter: 2023Q2

REPORT INFORMATION
  Report Type: Spontaneous
  Country: VN (occurrence: VN)
  Receive Date: 20230410
  Receipt Date: 20230410
  Transmission Date: 20230721
  Serious: Yes (Other)
  Sender: FDA-Public Use
  Company Number: VN-BAYER-2023A045859

PATIENT

DRUGS (1)
  1. ULTRAVIST [Suspect]
     Active Substance: IOPROMIDE
     Dosage: 100 ML, ONCE
     Route: 042

REACTIONS (6)
  - Anaphylactic shock [None]
  - Rash erythematous [None]
  - Lip swelling [None]
  - Eye swelling [None]
  - Hypotension [None]
  - Pulse abnormal [None]

NARRATIVE: CASE EVENT DATE: 20230321
